FAERS Safety Report 24627419 (Version 1)
Quarter: 2024Q4

REPORT INFORMATION
  Report Type: Spontaneous
  Country: US (occurrence: US)
  Receive Date: 20241116
  Receipt Date: 20241116
  Transmission Date: 20250115
  Serious: No
  Sender: SANOFI AVENTIS
  Company Number: US-SA-2024SA328052

PATIENT
  Age: 46 Year
  Sex: Female

DRUGS (1)
  1. DUPIXENT [Suspect]
     Active Substance: DUPILUMAB
     Indication: Nasal polyps
     Dosage: 300 MG, QOW
     Route: 058
     Dates: start: 20240125

REACTIONS (6)
  - Fungal infection [Unknown]
  - Product storage error [Unknown]
  - Wrong technique in product usage process [Unknown]
  - Eye infection [Unknown]
  - Eye inflammation [Unknown]
  - Eye irritation [Unknown]

NARRATIVE: CASE EVENT DATE: 20240101
